FAERS Safety Report 7081726-0 (Version None)
Quarter: 2010Q4

REPORT INFORMATION
  Report Type: 
  Country: None (occurrence: None)
  Receive Date: 20101025
  Receipt Date: 20101015
  Transmission Date: 20110411
  Serious: Yes (Other)
  Sender: FDA-Public Use
  Company Number: 2010SP051937

PATIENT

DRUGS (3)
  1. TEMOZOLOMIDE [Suspect]
     Indication: ACRAL LENTIGINOUS MELANOMA STAGE IV
     Dosage: 200 MG/M2;QD
  2. BEVACIZUMAB (BEVACIZUMAB) [Suspect]
     Indication: ACRAL LENTIGINOUS MELANOMA STAGE IV
     Dosage: 5 MG/KG
  3. SORAFENIB (SORAFENIB) [Suspect]
     Indication: ACRAL LENTIGINOUS MELANOMA STAGE IV
     Dosage: 400 MG

REACTIONS (5)
  - BONE MARROW FAILURE [None]
  - DIARRHOEA [None]
  - DYSPHONIA [None]
  - FATIGUE [None]
  - PALMAR-PLANTAR ERYTHRODYSAESTHESIA SYNDROME [None]
